FAERS Safety Report 16852822 (Version 1)
Quarter: 2019Q3

REPORT INFORMATION
  Report Type: Spontaneous
  Country: US (occurrence: US)
  Receive Date: 20190925
  Receipt Date: 20190925
  Transmission Date: 20191005
  Serious: No
  Sender: FDA-Public Use
  Company Number: US-JNJFOC-20190901283

PATIENT
  Age: 53 Year
  Sex: Female
  Weight: 72.64 kg

DRUGS (4)
  1. SPRAVATO [Suspect]
     Active Substance: ESKETAMINE
     Dates: start: 201907, end: 201908
  2. SPRAVATO [Suspect]
     Active Substance: ESKETAMINE
     Dates: start: 20190830
  3. SPRAVATO [Suspect]
     Active Substance: ESKETAMINE
     Dates: start: 201908, end: 20190830
  4. SPRAVATO [Suspect]
     Active Substance: ESKETAMINE
     Indication: DEPRESSION
     Dates: start: 201905, end: 201907

REACTIONS (6)
  - Irritability [Recovered/Resolved]
  - Headache [Recovered/Resolved]
  - Feeling abnormal [Recovered/Resolved]
  - Withdrawal syndrome [Not Recovered/Not Resolved]
  - Tension [Recovered/Resolved]
  - Hypersomnia [Not Recovered/Not Resolved]

NARRATIVE: CASE EVENT DATE: 201907
